FAERS Safety Report 6178147-1 (Version None)
Quarter: 2009Q2

REPORT INFORMATION
  Report Type: 
  Country: None (occurrence: None)
  Receive Date: 20090430
  Receipt Date: 20090415
  Transmission Date: 20091009
  Serious: Yes (Hospitalization)
  Sender: FDA-Public Use
  Company Number: PAR_02894_2009

PATIENT
  Sex: Female

DRUGS (27)
  1. IBUPROFEN [Suspect]
     Indication: DRUG USE FOR UNKNOWN INDICATION
     Dosage: (1200 MG)
     Dates: start: 20090221, end: 20090226
  2. IBUPROFEN [Suspect]
     Indication: DRUG USE FOR UNKNOWN INDICATION
     Dosage: (600 MG)
     Dates: start: 20090220, end: 20090220
  3. RIVAROXABAN [Suspect]
     Indication: HIP ARTHROPLASTY
     Dosage: (10 MG  ORAL), (10 MG ORAL)
     Route: 048
     Dates: start: 20090223, end: 20090223
  4. RIVAROXABAN [Suspect]
     Indication: THROMBOSIS PROPHYLAXIS
     Dosage: (10 MG  ORAL), (10 MG ORAL)
     Route: 048
     Dates: start: 20090223, end: 20090223
  5. RIVAROXABAN [Suspect]
     Indication: HIP ARTHROPLASTY
     Dosage: (10 MG  ORAL), (10 MG ORAL)
     Route: 048
     Dates: start: 20090225
  6. RIVAROXABAN [Suspect]
     Indication: THROMBOSIS PROPHYLAXIS
     Dosage: (10 MG  ORAL), (10 MG ORAL)
     Route: 048
     Dates: start: 20090225
  7. PROPOFOL [Concomitant]
  8. ATRACURIUM [Concomitant]
  9. FENTANYL [Concomitant]
  10. XYLONEST [Concomitant]
  11. NAROPIN [Concomitant]
  12. CEFAZOLIN [Concomitant]
  13. AKRINOR [Concomitant]
  14. NOVALGIN /00039501/ [Concomitant]
  15. JONOSTERIL /00351401/ [Concomitant]
  16. DIPIDOLOR [Concomitant]
  17. VOMEX [Concomitant]
  18. CLEXANE [Concomitant]
  19. ATACAND OR BLOPRESS [Concomitant]
  20. REMERGIL [Concomitant]
  21. RED BLOOD CELLS [Concomitant]
  22. COTRIM [Concomitant]
  23. PANTOZOL  /01263202/ [Concomitant]
  24. OXAZEPAM [Concomitant]
  25. GODAMED /00002701/ [Concomitant]
  26. RINGERS /00047801/ [Concomitant]
  27. BETAISODONA [Concomitant]

REACTIONS (2)
  - DRUG INTERACTION [None]
  - WOUND SECRETION [None]
